FAERS Safety Report 14261157 (Version 2)
Quarter: 2018Q1

REPORT INFORMATION
  Report Type: Report from Study
  Country: US (occurrence: US)
  Receive Date: 20171207
  Receipt Date: 20180105
  Transmission Date: 20180508
  Serious: Yes (Other)
  Sender: FDA-Public Use
  Company Number: US-MYLANLABS-2017M1077071

PATIENT
  Age: 21 Year
  Sex: Male
  Weight: 83 kg

DRUGS (4)
  1. DIVALPROEX SODIUM. [Concomitant]
     Active Substance: DIVALPROEX SODIUM
     Dosage: 500 MG, QD
  2. DIVALPROEX SODIUM. [Concomitant]
     Active Substance: DIVALPROEX SODIUM
     Indication: PRODUCT USED FOR UNKNOWN INDICATION
     Dosage: 1500 MG, HS
  3. HALOPERIDOL. [Concomitant]
     Active Substance: HALOPERIDOL
     Indication: PRODUCT USED FOR UNKNOWN INDICATION
     Dosage: 2 MG, HS
  4. CLOZAPINE. [Suspect]
     Active Substance: CLOZAPINE
     Indication: SCHIZOAFFECTIVE DISORDER
     Dosage: 175 MG, QD
     Route: 048
     Dates: end: 2017

REACTIONS (3)
  - Neutropenia [Recovering/Resolving]
  - Rebound effect [Recovering/Resolving]
  - Cholinergic syndrome [Recovering/Resolving]

NARRATIVE: CASE EVENT DATE: 2017
